FAERS Safety Report 5974800-0 (Version None)
Quarter: 2008Q4

REPORT INFORMATION
  Report Type: 
  Country: None (occurrence: None)
  Receive Date: 20081201
  Receipt Date: 20081124
  Transmission Date: 20090506
  Serious: Yes (Other)
  Sender: FDA-Public Use
  Company Number: US-PFIZER INC-2008100436

PATIENT
  Sex: Female
  Weight: 47.7 kg

DRUGS (3)
  1. XALATAN [Suspect]
     Indication: GLAUCOMA
     Route: 047
  2. ACTONEL [Concomitant]
  3. VALSARTAN [Concomitant]

REACTIONS (1)
  - BODY HEIGHT DECREASED [None]
